FAERS Safety Report 22831743 (Version 8)
Quarter: 2024Q1

REPORT INFORMATION
  Report Type: Report from Study
  Country: CO (occurrence: CO)
  Receive Date: 20230817
  Receipt Date: 20240118
  Transmission Date: 20240409
  Serious: Yes (Life-Threatening, Other)
  Sender: FDA-Public Use
  Company Number: CO-002147023-NVSC2023CO178329

PATIENT
  Age: 74 Year
  Sex: Female

DRUGS (2)
  1. KISQALI [Suspect]
     Active Substance: RIBOCICLIB
     Indication: Hormone receptor positive HER2 negative breast cancer
     Dosage: 200 MG, 3 TIMES A DAY
     Route: 048
     Dates: start: 20230815, end: 20231211
  2. FEMARA [Suspect]
     Active Substance: LETROZOLE
     Indication: Breast cancer metastatic
     Dosage: 2.5 MG, QD
     Route: 048
     Dates: start: 20230815, end: 20231211

REACTIONS (21)
  - Feeling abnormal [Unknown]
  - Blindness [Not Recovered/Not Resolved]
  - Hormone receptor positive HER2 negative breast cancer [Unknown]
  - Malignant neoplasm progression [Unknown]
  - Renal cyst [Recovered/Resolved]
  - Breast cyst [Recovered/Resolved]
  - Illness [Unknown]
  - Fatigue [Unknown]
  - Pain [Recovered/Resolved]
  - Pruritus [Unknown]
  - Alopecia [Unknown]
  - Weight decreased [Recovered/Resolved]
  - Intentional dose omission [Unknown]
  - Fall [Not Recovered/Not Resolved]
  - Ligament sprain [Not Recovered/Not Resolved]
  - Gait disturbance [Not Recovered/Not Resolved]
  - Limb injury [Unknown]
  - Ligament injury [Unknown]
  - Asthenia [Unknown]
  - Decreased immune responsiveness [Unknown]
  - Arthralgia [Not Recovered/Not Resolved]

NARRATIVE: CASE EVENT DATE: 20231101
